FAERS Safety Report 4890800-6 (Version None)
Quarter: 2006Q1

REPORT INFORMATION
  Report Type: 
  Country: None (occurrence: None)
  Receive Date: 20060123
  Receipt Date: 20060111
  Transmission Date: 20060701
  Serious: Yes (Other)
  Sender: FDA-Public Use
  Company Number: 2006007897

PATIENT
  Age: 54 Year
  Sex: Female

DRUGS (3)
  1. ZMAX [Suspect]
     Indication: BRONCHITIS
     Dosage: (1 IN 1 D), ORAL
     Route: 048
     Dates: start: 20051231, end: 20051231
  2. ZMAX [Suspect]
     Indication: SINUS DISORDER
     Dosage: (1 IN 1 D), ORAL
     Route: 048
     Dates: start: 20051231, end: 20051231
  3. IMMUNOGLOBULIN G HUMAN (IMMUNOGLOBULIN G HUMAN) [Concomitant]

REACTIONS (3)
  - CONDITION AGGRAVATED [None]
  - DIARRHOEA [None]
  - MULTIPLE SCLEROSIS [None]
